FAERS Safety Report 8791839 (Version 1)
Quarter: 2012Q4

REPORT INFORMATION
  Report Type: 
  Country: US (occurrence: US)
  Receive Date: 20120918
  Receipt Date: 20120918
  Transmission Date: 20130627
  Serious: Yes (Other)
  Sender: FDA-Public Use
  Company Number: US-BAYER-2012-094523

PATIENT
  Age: 42 Year
  Sex: Female

DRUGS (2)
  1. MIRENA [Suspect]
     Indication: MENORRHAGIA
     Dosage: 20 ?g/d, CONT
     Route: 015
     Dates: start: 20120807
  2. MIRENA [Suspect]
     Indication: CONTRACEPTION

REACTIONS (9)
  - Vaginal haemorrhage [None]
  - Depressed mood [None]
  - Breast pain [None]
  - Back pain [None]
  - Weight increased [None]
  - Libido decreased [None]
  - Abdominal distension [None]
  - Swelling [None]
  - Alopecia [None]
